FAERS Safety Report 21194834 (Version 7)
Quarter: 2022Q4

REPORT INFORMATION
  Report Type: Report from Study
  Country: CA (occurrence: CA)
  Receive Date: 20220810
  Receipt Date: 20221223
  Transmission Date: 20230113
  Serious: Yes (Other)
  Sender: FDA-Public Use
  Company Number: CA-BAUSCH-BL-2021-039163

PATIENT
  Age: 58 Year
  Sex: Female

DRUGS (8)
  1. SILIQ [Suspect]
     Active Substance: BRODALUMAB
     Indication: Psoriasis
     Dosage: 210 MG/1.5 ML, WEEKLY FOR WEEK 0, 1, AND 2
     Route: 058
     Dates: start: 20211029, end: 20211112
  2. SILIQ [Suspect]
     Active Substance: BRODALUMAB
     Dosage: 210 MG/1.5 ML, Q2 WEEKS
     Route: 058
     Dates: start: 2021
  3. SILIQ [Suspect]
     Active Substance: BRODALUMAB
     Dosage: 210 MG/1.5 ML, Q2 WEEKS
     Route: 058
     Dates: start: 202201, end: 20220804
  4. SILIQ [Suspect]
     Active Substance: BRODALUMAB
     Dosage: 210 MG/1.5 ML, Q2 WEEKS
     Route: 058
     Dates: start: 20221215
  5. TRAMADOL [Concomitant]
     Active Substance: TRAMADOL
     Indication: Product used for unknown indication
  6. BREO ELLIPTA [Concomitant]
     Active Substance: FLUTICASONE FUROATE\VILANTEROL TRIFENATATE
     Indication: Product used for unknown indication
     Dosage: BREO ELLIPTA INHALER
  7. NAPROXEN [Concomitant]
     Active Substance: NAPROXEN
     Indication: Product used for unknown indication
  8. TETANUS TOXOID ADSORBED (VACCINE) [Concomitant]
     Active Substance: CLOSTRIDIUM TETANI TOXOID ANTIGEN (FORMALDEHYDE INACTIVATED)
     Indication: Tetanus immunisation

REACTIONS (16)
  - Blood pressure systolic increased [Unknown]
  - Feeling abnormal [Unknown]
  - Stress [Unknown]
  - Menopause [Unknown]
  - Lip swelling [Unknown]
  - Chest pain [Recovered/Resolved]
  - Muscle strain [Recovered/Resolved]
  - Secretion discharge [Unknown]
  - Depressed mood [Recovering/Resolving]
  - Psoriasis [Not Recovered/Not Resolved]
  - Symptom recurrence [Not Recovered/Not Resolved]
  - COVID-19 [Unknown]
  - Localised infection [Unknown]
  - Intentional dose omission [Unknown]
  - Therapy interrupted [Unknown]
  - Intentional product use issue [Unknown]

NARRATIVE: CASE EVENT DATE: 20211112
